FAERS Safety Report 4386476-7 (Version None)
Quarter: 2004Q2

REPORT INFORMATION
  Report Type: 
  Country: None (occurrence: None)
  Receive Date: 20040623
  Receipt Date: 20040617
  Transmission Date: 20050107
  Serious: Yes (Other)
  Sender: FDA-Public Use
  Company Number: 200412735BCC

PATIENT
  Age: 76 Year
  Sex: Male
  Weight: 72.5755 kg

DRUGS (7)
  1. ALKA SELTZER PLUS COLD [Suspect]
     Indication: NASOPHARYNGITIS
     Dosage: 500/10/4 MG, ONCE, ORAL
     Route: 048
     Dates: start: 20040530
  2. ASPIRIN [Suspect]
     Indication: CEREBROVASCULAR ACCIDENT PROPHYLAXIS
     Dosage: 81 MG, QD, ORAL
     Route: 048
     Dates: start: 19950101
  3. ASPIRIN [Suspect]
     Indication: MYOCARDIAL INFARCTION
     Dosage: 81 MG, QD, ORAL
     Route: 048
     Dates: start: 19950101
  4. NORVASC [Concomitant]
  5. VITAMIN E [Concomitant]
  6. LIPITOR [Concomitant]
  7. TRIAMTERENE [Concomitant]

REACTIONS (3)
  - CHEST DISCOMFORT [None]
  - CHEST PAIN [None]
  - HYPOAESTHESIA [None]
